FAERS Safety Report 19011978 (Version 2)
Quarter: 2021Q1

REPORT INFORMATION
  Report Type: Spontaneous
  Country: MM (occurrence: MM)
  Receive Date: 20210315
  Receipt Date: 20210323
  Transmission Date: 20210420
  Serious: Yes (Other)
  Sender: FDA-Public Use
  Company Number: MM-ORGANON-O2103MMR001609

PATIENT
  Age: 31 Year
  Sex: Female

DRUGS (1)
  1. IMPLANON NXT 68MG [Suspect]
     Active Substance: ETONOGESTREL
     Indication: CONTRACEPTION
     Dosage: 1 IMPLANT
     Route: 059
     Dates: start: 20181206, end: 20210301

REACTIONS (4)
  - Tuberculosis [Unknown]
  - Potentiating drug interaction [Unknown]
  - Unintended pregnancy [Not Recovered/Not Resolved]
  - Pregnancy with implant contraceptive [Not Recovered/Not Resolved]

NARRATIVE: CASE EVENT DATE: 20201026
